FAERS Safety Report 6670670-6 (Version None)
Quarter: 2010Q2

REPORT INFORMATION
  Report Type: 
  Country: None (occurrence: None)
  Receive Date: 20100407
  Receipt Date: 20100326
  Transmission Date: 20101027
  Serious: Yes (Other)
  Sender: FDA-Public Use
  Company Number: FR-JNJFOC-20100301177

PATIENT
  Sex: Female
  Weight: 63 kg

DRUGS (6)
  1. REMICADE [Suspect]
     Indication: RHEUMATOID ARTHRITIS
     Route: 042
  2. REMICADE [Suspect]
     Route: 042
  3. REMICADE [Suspect]
     Route: 042
  4. REMICADE [Suspect]
     Route: 042
  5. LEFLUNOMIDE [Concomitant]
  6. ACETAMINOPHEN WITH PROPOXYPHENE HCL TAB [Concomitant]

REACTIONS (4)
  - ANAPHYLACTIC SHOCK [None]
  - CONVULSION [None]
  - INFUSION RELATED REACTION [None]
  - LOSS OF CONSCIOUSNESS [None]
